FAERS Safety Report 14202695 (Version 4)
Quarter: 2018Q2

REPORT INFORMATION
  Report Type: Spontaneous
  Country: GB (occurrence: GB)
  Receive Date: 20171118
  Receipt Date: 20180522
  Transmission Date: 20180711
  Serious: Yes (Other)
  Sender: FDA-Public Use
  Company Number: GB-ACCORD-061087

PATIENT
  Age: 43 Year
  Sex: Male

DRUGS (7)
  1. LIPEGFILGRASTIM [Suspect]
     Active Substance: LIPEGFILGRASTIM
     Indication: PRODUCT USED FOR UNKNOWN INDICATION
     Dosage: 4 CYCLES OF 21 DAYS EACH; ON D6 OF EACH CYCLE
     Dates: start: 20170820
  2. ZAPONEX [Suspect]
     Active Substance: CLOZAPINE
     Indication: SCHIZOPHRENIA
     Route: 048
     Dates: start: 20151103
  3. CISPLATIN. [Suspect]
     Active Substance: CISPLATIN
     Indication: TESTICULAR GERM CELL CANCER METASTATIC
     Dosage: GIVEN ON DAYS 1 - 5 OF CHEMOTHERAPY CYCLE
     Dates: start: 20170815
  4. ETOPOSIDE. [Suspect]
     Active Substance: ETOPOSIDE
     Indication: TESTICULAR GERM CELL CANCER METASTATIC
     Dosage: 4 CYCLES OF 21 DAYS EACH; ON D 1-5 OF EACH CYCLE
     Dates: start: 20170815
  5. ONDANSETRON [Suspect]
     Active Substance: ONDANSETRON
     Indication: TESTICULAR GERM CELL CANCER METASTATIC
     Dates: start: 20170815
  6. DEXAMETHASONE. [Suspect]
     Active Substance: DEXAMETHASONE
     Indication: TESTICULAR GERM CELL CANCER METASTATIC
     Dosage: 4 CYCLES OF 21 DAYS EACH; ON D 1-5 OF EACH CYCLE
     Dates: start: 20170801
  7. EMEND [Suspect]
     Active Substance: APREPITANT
     Indication: NAUSEA
     Dosage: 4 CYCLES OF 21 DAYS EACH; ON D 1-3 OF EACH CYCLE
     Dates: start: 20170815

REACTIONS (8)
  - Seminoma [Not Recovered/Not Resolved]
  - Neutropenia [Not Recovered/Not Resolved]
  - Thrombocytopenia [Recovered/Resolved]
  - Platelet count increased [Recovered/Resolved]
  - Testicular germ cell cancer metastatic [Not Recovered/Not Resolved]
  - Leukopenia [Recovered/Resolved]
  - Contraindicated product administered [Unknown]
  - Off label use [Unknown]

NARRATIVE: CASE EVENT DATE: 20170620
